FAERS Safety Report 9112779 (Version 2)
Quarter: 2013Q1

REPORT INFORMATION
  Report Type: Spontaneous
  Country: DE (occurrence: DE)
  Receive Date: 20130211
  Receipt Date: 20130325
  Transmission Date: 20140127
  Serious: Yes (Hospitalization)
  Sender: FDA-Public Use
  Company Number: DE-ELI_LILLY_AND_COMPANY-DE201302000141

PATIENT
  Age: 66 Year
  Sex: Female
  Weight: 75 kg

DRUGS (5)
  1. EFIENT [Suspect]
     Indication: ANGINA PECTORIS
     Dosage: 60 MG, SINGLE
     Dates: start: 20110121, end: 20110121
  2. EFIENT [Suspect]
     Dosage: 10 MG, QD
     Dates: start: 20110122
  3. ASPIRIN [Concomitant]
     Dosage: UNK, SINGLE
     Dates: start: 20110121
  4. ASPIRIN [Concomitant]
     Dosage: 100 MG, QD
  5. CLOPIDOGREL [Concomitant]

REACTIONS (1)
  - Angina pectoris [Recovered/Resolved]
